FAERS Safety Report 22015382 (Version 1)
Quarter: 2023Q1

REPORT INFORMATION
  Report Type: Spontaneous
  Country: NL (occurrence: None)
  Receive Date: 20230221
  Receipt Date: 20230221
  Transmission Date: 20230418
  Serious: Yes (Other)
  Sender: FDA-Public Use
  Company Number: 2023A036232

PATIENT
  Sex: Female
  Weight: 79 kg

DRUGS (6)
  1. SEROQUEL XR [Suspect]
     Active Substance: QUETIAPINE FUMARATE
     Indication: Bipolar disorder
     Dosage: ONCE A DAY
     Route: 048
     Dates: start: 20140501
  2. SEROQUEL XR [Suspect]
     Active Substance: QUETIAPINE FUMARATE
     Indication: Bipolar disorder
     Dosage: 300 TO 250 AND THEN 250 TO 200 AND 200 TO 150.
     Route: 048
  3. SEROQUEL XR [Suspect]
     Active Substance: QUETIAPINE FUMARATE
     Indication: Bipolar disorder
     Dosage: 300 TO 250 AND THEN 250 TO 200 AND 200 TO 150.
     Route: 048
  4. SEROQUEL XR [Suspect]
     Active Substance: QUETIAPINE FUMARATE
     Indication: Bipolar disorder
     Dosage: 300 TO 250 AND THEN 250 TO 200 AND 200 TO 150.
     Route: 048
  5. VENLAFAXINE HYDROCHLORIDE [Concomitant]
     Active Substance: VENLAFAXINE HYDROCHLORIDE
     Dosage: MODIFIED-RELEASE CAPSULE, 75 MG (MILLIGRAM)
  6. ZYPREXA [Concomitant]
     Active Substance: OLANZAPINE
     Dosage: TABLET, 2,5 MG (MILLIGRAM)

REACTIONS (3)
  - Limb discomfort [Recovered/Resolved]
  - Nightmare [Not Recovered/Not Resolved]
  - Fatigue [Unknown]
